FAERS Safety Report 18125253 (Version 14)
Quarter: 2020Q4

REPORT INFORMATION
  Report Type: Report from Study
  Country: IL (occurrence: IL)
  Receive Date: 20200807
  Receipt Date: 20201125
  Transmission Date: 20210113
  Serious: Yes (Life-Threatening, Hospitalization)
  Sender: FDA-Public Use
  Company Number: IL-EISAI MEDICAL RESEARCH-EC-2020-078654

PATIENT
  Age: 66 Year
  Sex: Male
  Weight: 44 kg

DRUGS (13)
  1. PEMBROLIZUMAB. [Suspect]
     Active Substance: PEMBROLIZUMAB
     Route: 041
     Dates: start: 20200714, end: 20200714
  2. FENTANYL TRANSDERMAL SYSTEM [Concomitant]
     Active Substance: FENTANYL
     Dates: start: 20200213
  3. MEGAXIA [Concomitant]
     Dates: start: 20200414
  4. ROKACET PLUS [Concomitant]
     Dates: start: 20200213
  5. SEROQUEL [Concomitant]
     Active Substance: QUETIAPINE FUMARATE
     Dates: start: 202007
  6. LENVATINIB [Suspect]
     Active Substance: LENVATINIB
     Indication: NON-SMALL CELL LUNG CANCER METASTATIC
     Dosage: STARTING DOSE AT 20 MG, FLUCTUATED DOSAGE
     Route: 048
     Dates: start: 20200116, end: 20200713
  7. LENVATINIB [Suspect]
     Active Substance: LENVATINIB
     Route: 048
     Dates: start: 20200714, end: 20200725
  8. NEXIUM [Concomitant]
     Active Substance: ESOMEPRAZOLE MAGNESIUM
     Dates: start: 201601
  9. V DALGIN [Concomitant]
     Dates: start: 20200213
  10. BETAREN [Concomitant]
     Dates: start: 20200624
  11. PEMBROLIZUMAB. [Suspect]
     Active Substance: PEMBROLIZUMAB
     Indication: NON-SMALL CELL LUNG CANCER METASTATIC
     Route: 041
     Dates: start: 20200116, end: 20200623
  12. PEMBROLIZUMAB. [Suspect]
     Active Substance: PEMBROLIZUMAB
     Route: 041
     Dates: start: 20201001
  13. AUGMENTIN [Concomitant]
     Active Substance: AMOXICILLIN\CLAVULANATE POTASSIUM
     Dates: start: 20200707, end: 20200714

REACTIONS (1)
  - Gastrointestinal haemorrhage [Recovered/Resolved]

NARRATIVE: CASE EVENT DATE: 20200724
